FAERS Safety Report 18857719 (Version 1)
Quarter: 2021Q1

REPORT INFORMATION
  Report Type: Spontaneous
  Country: JP (occurrence: JP)
  Receive Date: 20210208
  Receipt Date: 20210208
  Transmission Date: 20210420
  Serious: Yes (Hospitalization)
  Sender: FDA-Public Use
  Company Number: JP-AMGEN-JPNSP2021017715

PATIENT
  Age: 44 Year
  Sex: Male

DRUGS (8)
  1. METHYLPREDNISOLONE. [Concomitant]
     Active Substance: METHYLPREDNISOLONE
     Dosage: 24 MILLIGRAM
     Dates: start: 20200719, end: 202007
  2. COLCHICINE. [Concomitant]
     Active Substance: COLCHICINE
     Indication: APHTHOUS ULCER
     Dosage: 1 MILLIGRAM
     Dates: start: 20200624
  3. METHYLPREDNISOLONE. [Concomitant]
     Active Substance: METHYLPREDNISOLONE
     Dosage: 12 MILLIGRAM
     Dates: start: 20200720, end: 20200727
  4. METHYLPREDNISOLONE. [Concomitant]
     Active Substance: METHYLPREDNISOLONE
     Dosage: 24 MILLIGRAM
     Dates: start: 20200715, end: 202007
  5. SALCOAT [Concomitant]
     Active Substance: BECLOMETHASONE DIPROPIONATE
  6. OTEZLA [Suspect]
     Active Substance: APREMILAST
     Dosage: 30 MILLIGRAM, BID
     Route: 048
  7. OTEZLA [Suspect]
     Active Substance: APREMILAST
     Indication: BEHCET^S SYNDROME
     Dosage: 30 MILLIGRAM, BID
     Route: 048
     Dates: start: 20200401, end: 202009
  8. ADALIMUMAB [Concomitant]
     Active Substance: ADALIMUMAB
     Dosage: UNK
     Dates: start: 20201113

REACTIONS (2)
  - Therapeutic product effect incomplete [Unknown]
  - Aphthous ulcer [Unknown]

NARRATIVE: CASE EVENT DATE: 20200624
